FAERS Safety Report 5253752-5 (Version None)
Quarter: 2007Q1

REPORT INFORMATION
  Report Type: 
  Country: None (occurrence: None)
  Receive Date: 20070227
  Receipt Date: 20070213
  Transmission Date: 20070707
  Serious: Yes (Hospitalization)
  Sender: FDA-Public Use
  Company Number: 2006BI018905

PATIENT
  Age: 45 Year
  Sex: Female
  Weight: 127.0072 kg

DRUGS (17)
  1. NATALIZUMAB [Suspect]
     Indication: MULTIPLE SCLEROSIS
     Dosage: 30 MG;QM; IV
     Route: 042
     Dates: start: 20061120
  2. FLEXERIL [Concomitant]
  3. TRILEPTAL [Concomitant]
  4. LYRICA [Concomitant]
  5. ULTRAM [Concomitant]
  6. XANAX [Concomitant]
  7. COLACE [Concomitant]
  8. ACIPHEX [Concomitant]
  9. SYNTHROID [Concomitant]
  10. WELLBUTRIN SR [Concomitant]
  11. LEXAPRO [Concomitant]
  12. ZELNORM [Concomitant]
  13. FOLIC ACID [Concomitant]
  14. MULTI-VITAMIN [Concomitant]
  15. POTASSIUM ACETATE [Concomitant]
  16. IRON [Concomitant]
  17. THYROLAR [Concomitant]

REACTIONS (7)
  - ANKLE FRACTURE [None]
  - ELECTROLYTE IMBALANCE [None]
  - FALL [None]
  - FIBULA FRACTURE [None]
  - FOOT FRACTURE [None]
  - HYPOKALAEMIA [None]
  - JAUNDICE [None]
